FAERS Safety Report 4394711-4 (Version None)
Quarter: 2004Q3

REPORT INFORMATION
  Report Type: 
  Country: None (occurrence: None)
  Receive Date: 20040712
  Receipt Date: 20040628
  Transmission Date: 20050211
  Serious: Yes (Hospitalization)
  Sender: FDA-Public Use
  Company Number: 200412232JP

PATIENT
  Age: 59 Year
  Sex: Male
  Weight: 53.7 kg

DRUGS (12)
  1. ARAVA [Suspect]
     Indication: RHEUMATOID ARTHRITIS
     Route: 048
     Dates: start: 20031031, end: 20040521
  2. MEDROL [Concomitant]
     Indication: RHEUMATOID ARTHRITIS
     Route: 048
  3. RHEUMATREX [Concomitant]
     Indication: RHEUMATOID ARTHRITIS
     Dosage: DOSE: 8MG/WEEK
     Route: 048
     Dates: end: 20031030
  4. PHENYTOIN [Concomitant]
     Indication: EPILEPSY
     Route: 048
  5. CYTOTEC [Concomitant]
     Indication: ULCER
     Route: 048
  6. DEPAKENE [Concomitant]
     Indication: EPILEPSY
     Route: 048
  7. PHENOBAL [Concomitant]
     Indication: EPILEPSY
     Route: 048
  8. MARZULENE S [Concomitant]
     Indication: GASTRITIS
     Route: 048
  9. MUCOSOLVAN [Concomitant]
     Indication: BRONCHITIS CHRONIC
     Route: 048
  10. VOLTAREN [Concomitant]
     Indication: RHEUMATOID ARTHRITIS
     Route: 054
  11. LASIX [Concomitant]
     Indication: PLEURAL EFFUSION
     Route: 048
  12. LOPEMIN [Concomitant]
     Indication: DIARRHOEA
     Route: 048
     Dates: start: 20040319

REACTIONS (13)
  - ALBUMIN URINE PRESENT [None]
  - BLOOD FIBRINOGEN INCREASED [None]
  - CONDITION AGGRAVATED [None]
  - DIARRHOEA [None]
  - FIBRIN DEGRADATION PRODUCTS INCREASED [None]
  - FREQUENT BOWEL MOVEMENTS [None]
  - GRANULOCYTE COUNT DECREASED [None]
  - INFECTION [None]
  - LYMPHOCYTE PERCENTAGE DECREASED [None]
  - NASOPHARYNGITIS [None]
  - NEOPLASM MALIGNANT [None]
  - NEUTROPHIL PERCENTAGE INCREASED [None]
  - PLEURAL EFFUSION [None]
